FAERS Safety Report 9098626 (Version 1)
Quarter: 2013Q1

REPORT INFORMATION
  Report Type: Spontaneous
  Country: US (occurrence: US)
  Receive Date: 20130213
  Receipt Date: 20130213
  Transmission Date: 20140127
  Serious: No
  Sender: FDA-Public Use
  Company Number: US-PFIZER INC-2013054777

PATIENT
  Sex: Female

DRUGS (2)
  1. LYRICA [Suspect]
     Indication: POSTOPERATIVE CARE
     Dosage: UNK
     Dates: start: 2011
  2. MOBIC [Suspect]
     Dosage: UNK

REACTIONS (1)
  - Blood creatinine increased [Unknown]
